FAERS Safety Report 20109963 (Version 3)
Quarter: 2022Q1

REPORT INFORMATION
  Report Type: Report from Study
  Country: CA (occurrence: CA)
  Receive Date: 20211124
  Receipt Date: 20220330
  Transmission Date: 20220424
  Serious: Yes (Other)
  Sender: FDA-Public Use
  Company Number: CA-BAUSCH-BL-2021-038009

PATIENT

DRUGS (8)
  1. CONTRAVE [Suspect]
     Active Substance: BUPROPION HYDROCHLORIDE\NALTREXONE HYDROCHLORIDE
     Indication: Weight control
     Dosage: 90/8MG
     Route: 048
     Dates: start: 202109, end: 2021
  2. CONTRAVE [Suspect]
     Active Substance: BUPROPION HYDROCHLORIDE\NALTREXONE HYDROCHLORIDE
     Dosage: 90/8MG; STARTED APPROXIMATELY 04/OCT/2021 AT 2 TABS BID
     Route: 048
     Dates: start: 202110, end: 202110
  3. CONTRAVE [Suspect]
     Active Substance: BUPROPION HYDROCHLORIDE\NALTREXONE HYDROCHLORIDE
     Dosage: 90/8MG; STARTED APPROXIMATELY 18/OCT/2021 AT 2 TABS AM, 1 TAB PM
     Route: 048
     Dates: start: 202110, end: 202110
  4. CONTRAVE [Suspect]
     Active Substance: BUPROPION HYDROCHLORIDE\NALTREXONE HYDROCHLORIDE
     Dosage: 90/8MG; STARTED APPROXIMATELY 20/OCT/2021 AT 2 TABS BID
     Route: 048
     Dates: start: 202110, end: 202112
  5. SILENOR [Concomitant]
     Active Substance: DOXEPIN HYDROCHLORIDE
     Indication: Poor quality sleep
     Dosage: AT BEDTIME (2 DOSAGE FORM, 1 IN 1 D)
     Route: 048
     Dates: end: 202109
  6. SILENOR [Concomitant]
     Active Substance: DOXEPIN HYDROCHLORIDE
     Dosage: AT BEDTIME (1 DOSAGE FORMS, 1 IN 1 D)
     Route: 048
     Dates: start: 202109
  7. DOXEPIN HYDROCHLORIDE [Concomitant]
     Active Substance: DOXEPIN HYDROCHLORIDE
     Indication: Poor quality sleep
     Dosage: (1 DOSAGE FORMS, 1 IN 1 D)
     Route: 048
  8. DOXEPIN HYDROCHLORIDE [Concomitant]
     Active Substance: DOXEPIN HYDROCHLORIDE
     Dosage: (2 DOSAGE FORMS, 1 IN 1 D)
     Route: 048

REACTIONS (7)
  - Hallucination, visual [Recovered/Resolved]
  - Constipation [Not Recovered/Not Resolved]
  - Treatment noncompliance [Unknown]
  - Insurance issue [Unknown]
  - Product dose omission issue [Unknown]
  - Therapy cessation [Unknown]
  - Inability to afford medication [Unknown]

NARRATIVE: CASE EVENT DATE: 20210901
